FAERS Safety Report 23979473 (Version 4)
Quarter: 2024Q3

REPORT INFORMATION
  Report Type: Report from Study
  Country: US (occurrence: US)
  Receive Date: 20240615
  Receipt Date: 20240726
  Transmission Date: 20241017
  Serious: Yes (Hospitalization, Other)
  Sender: AIMMUNE
  Company Number: US-ZENPEP LLC-2024AIMT00923

PATIENT

DRUGS (2)
  1. ZENPEP [Suspect]
     Active Substance: PANCRELIPASE AMYLASE\PANCRELIPASE LIPASE\PANCRELIPASE PROTEASE
     Indication: Pancreatitis
     Dosage: 15 000 UNITS CAPSULES
     Route: 048
     Dates: start: 20240411
  2. ZENPEP [Suspect]
     Active Substance: PANCRELIPASE AMYLASE\PANCRELIPASE LIPASE\PANCRELIPASE PROTEASE
     Dosage: 15 000 UNITS CAPSULES, ONCE, LAST DOSE PRIOR TO EVENTS
     Route: 048

REACTIONS (9)
  - Volvulus [Unknown]
  - Intestinal obstruction [Unknown]
  - Abdominal pain [Unknown]
  - Pain [Unknown]
  - Ill-defined disorder [Unknown]
  - Loss of bladder sensation [Unknown]
  - Orthosis user [Unknown]
  - Fluid retention [Unknown]
  - Abdominal distension [Unknown]

NARRATIVE: CASE EVENT DATE: 20240717
